FAERS Safety Report 4729962-X (Version None)
Quarter: 2005Q3

REPORT INFORMATION
  Report Type: 
  Country: None (occurrence: None)
  Receive Date: 20050801
  Receipt Date: 20050718
  Transmission Date: 20060218
  Serious: Yes (Other)
  Sender: FDA-Public Use
  Company Number: 2005GB01395

PATIENT
  Age: 33 Year
  Sex: Female

DRUGS (4)
  1. QUETIAPINE [Suspect]
     Indication: SCHIZOPHRENIA
     Route: 048
     Dates: start: 20040507
  2. EFFEXOR XR [Suspect]
     Indication: DEPRESSION
     Route: 048
     Dates: start: 20040323
  3. AMITRIPTYLINE HCL [Suspect]
     Route: 065
  4. OLANZAPINE [Suspect]
     Route: 065

REACTIONS (6)
  - BLOOD PRESSURE INCREASED [None]
  - CAESAREAN SECTION [None]
  - DRUG EXPOSURE DURING PREGNANCY [None]
  - GESTATIONAL DIABETES [None]
  - PREGNANCY [None]
  - PREMATURE BABY [None]
